FAERS Safety Report 7511585-0 (Version None)
Quarter: 2011Q2

REPORT INFORMATION
  Report Type: 
  Country: None (occurrence: None)
  Receive Date: 20110531
  Receipt Date: 20110523
  Transmission Date: 20111010
  Serious: Yes (Hospitalization)
  Sender: FDA-Public Use
  Company Number: FR-PFIZER INC-2004108938

PATIENT
  Age: 52 Year
  Sex: Male

DRUGS (8)
  1. SPASFON [Concomitant]
     Route: 065
  2. URSOLVAN [Concomitant]
     Route: 065
  3. VITAMIN B1 AND B6 [Concomitant]
     Route: 065
  4. PARACETAMOL [Concomitant]
     Route: 065
  5. ZYVOX [Suspect]
     Indication: LUNG INFECTION
     Dosage: BID
     Route: 042
     Dates: start: 20040930, end: 20041014
  6. PIPERACILLIN AND TAZOBACTAM [Suspect]
     Indication: LUNG INFECTION
     Dosage: 4 G/0.5 G TWICE PER DAY
     Route: 042
     Dates: start: 20040930, end: 20041014
  7. PHYTONADIONE [Concomitant]
     Route: 065
  8. OMEPRAZOLE [Concomitant]
     Route: 065

REACTIONS (1)
  - RENAL FAILURE ACUTE [None]
